FAERS Safety Report 5827140-4 (Version None)
Quarter: 2008Q3

REPORT INFORMATION
  Report Type: 
  Country: None (occurrence: None)
  Receive Date: 20080729
  Receipt Date: 20080729
  Transmission Date: 20090109
  Serious: Yes (Other)
  Sender: FDA-Public Use
  Company Number: None

PATIENT
  Age: 72 Year
  Sex: Female
  Weight: 56.9 kg

DRUGS (1)
  1. RELAFEN [Suspect]
     Indication: ARTHRITIS
     Dosage: 1 BID PO
     Route: 048
     Dates: start: 20080208, end: 20080708

REACTIONS (5)
  - ABDOMINAL PAIN [None]
  - FAECES DISCOLOURED [None]
  - HAEMATEMESIS [None]
  - LIVER FUNCTION TEST ABNORMAL [None]
  - MELAENA [None]
